FAERS Safety Report 10448971 (Version 3)
Quarter: 2014Q4

REPORT INFORMATION
  Report Type: Spontaneous
  Country: IT (occurrence: IT)
  Receive Date: 20140912
  Receipt Date: 20141202
  Transmission Date: 20150528
  Serious: Yes (Hospitalization, Other)
  Sender: FDA-Public Use
  Company Number: IT-BRISTOL-MYERS SQUIBB COMPANY-21383039

PATIENT
  Age: 86 Year
  Sex: Male

DRUGS (2)
  1. TICLOPIDINE [Suspect]
     Active Substance: TICLOPIDINE
     Route: 048
     Dates: start: 20140101, end: 20140715
  2. COUMADIN [Suspect]
     Active Substance: WARFARIN SODIUM
     Dates: start: 20140101, end: 20140701

REACTIONS (5)
  - Conjunctival haemorrhage [Unknown]
  - Cerebral haemorrhage [Unknown]
  - Fall [Unknown]
  - International normalised ratio increased [Unknown]
  - Head injury [Unknown]

NARRATIVE: CASE EVENT DATE: 2014
